FAERS Safety Report 19154586 (Version 1)
Quarter: 2021Q2

REPORT INFORMATION
  Report Type: Spontaneous
  Country: IL (occurrence: IL)
  Receive Date: 20210419
  Receipt Date: 20210419
  Transmission Date: 20210717
  Serious: Yes (Hospitalization, Other)
  Sender: FDA-Public Use
  Company Number: IL-TEVA-2021-IL-1900629

PATIENT
  Age: 2 Year
  Sex: Female

DRUGS (1)
  1. DEXTROAMPHET SACCHARAT, AMPHET ASPARTATE, DEXTROAMPHET SULFATE AND AMPHET SULFAT [Suspect]
     Active Substance: AMPHETAMINE ASPARTATE\AMPHETAMINE SULFATE\DEXTROAMPHETAMINE SACCHARATE\DEXTROAMPHETAMINE SULFATE

REACTIONS (12)
  - Euphoric mood [Recovering/Resolving]
  - Heart rate increased [Recovering/Resolving]
  - Product closure issue [Unknown]
  - Accidental exposure to product by child [Unknown]
  - Speech disorder [Recovering/Resolving]
  - Indifference [Recovering/Resolving]
  - Oxygen saturation decreased [Recovering/Resolving]
  - Insomnia [Recovering/Resolving]
  - Eating disorder [Recovering/Resolving]
  - Agitation [Recovering/Resolving]
  - Confusional state [Recovering/Resolving]
  - Restlessness [Recovering/Resolving]

NARRATIVE: CASE EVENT DATE: 20210403
